FAERS Safety Report 4524885-3 (Version None)
Quarter: 2004Q4

REPORT INFORMATION
  Report Type: 
  Country: None (occurrence: None)
  Receive Date: 20041213
  Receipt Date: 20041202
  Transmission Date: 20050328
  Serious: Yes (Death)
  Sender: FDA-Public Use
  Company Number: US-JNJFOC-20030703364

PATIENT
  Sex: Male
  Weight: 104.33 kg

DRUGS (17)
  1. LEVOFLOXACIN [Suspect]
     Route: 042
     Dates: start: 20030226, end: 20030226
  2. GLYBURIDE [Interacting]
     Dates: start: 20030222, end: 20030225
  3. ESCITALOPRAM [Concomitant]
     Route: 049
     Dates: start: 20030207, end: 20030225
  4. NITROGLYCERIN [Concomitant]
     Route: 003
     Dates: start: 20030126, end: 20030225
  5. ALLOPURINOL [Concomitant]
     Route: 049
     Dates: start: 20030126, end: 20030225
  6. ASPIRIN [Concomitant]
     Route: 049
     Dates: start: 20030126, end: 20030225
  7. ATENOLOL [Concomitant]
     Route: 049
  8. CLOPIDROGEL [Concomitant]
     Route: 049
     Dates: start: 20030126, end: 20030225
  9. DILTIAZEM [Concomitant]
     Dates: start: 20030126, end: 20030225
  10. DOXAZOSIN [Concomitant]
     Route: 049
     Dates: start: 20030126, end: 20030225
  11. FLUCONAZOLE [Concomitant]
     Route: 049
     Dates: start: 20030210, end: 20030225
  12. LEVOTHYROXINE SODIUM [Concomitant]
     Route: 049
     Dates: start: 20030126, end: 20030225
  13. METOCLOPRAMIDE [Concomitant]
     Route: 049
     Dates: start: 20030204, end: 20030225
  14. MIRTAZAPINE [Concomitant]
     Route: 049
     Dates: start: 20030224, end: 20030225
  15. PANTOPRAZOLE [Concomitant]
     Route: 049
     Dates: start: 20030210, end: 20030225
  16. SIMVASTATIN [Concomitant]
     Route: 049
     Dates: start: 20030126, end: 20030225
  17. SODIUM BICARDONATE [Concomitant]
     Route: 049
     Dates: start: 20030210, end: 20030225

REACTIONS (7)
  - COMA [None]
  - DECREASED APPETITE [None]
  - DRUG INTERACTION [None]
  - GENERAL PHYSICAL HEALTH DETERIORATION [None]
  - HYPOGLYCAEMIA [None]
  - MYOCARDIAL INFARCTION [None]
  - PNEUMONIA ASPIRATION [None]
